FAERS Safety Report 12606979 (Version 3)
Quarter: 2017Q1

REPORT INFORMATION
  Report Type: Spontaneous
  Country: US (occurrence: US)
  Receive Date: 20160729
  Receipt Date: 20170103
  Transmission Date: 20170428
  Serious: No
  Sender: FDA-Public Use
  Company Number: US-ASTRAZENECA-2016SE69154

PATIENT
  Age: 75 Year
  Sex: Female
  Weight: 64.4 kg

DRUGS (3)
  1. CATSULES [Concomitant]
     Route: 048
  2. TUDORZA PRESSAIR [Suspect]
     Active Substance: ACLIDINIUM BROMIDE
     Indication: EMPHYSEMA
     Route: 055
     Dates: start: 20160603
  3. TUDORZA PRESSAIR [Suspect]
     Active Substance: ACLIDINIUM BROMIDE
     Indication: EMPHYSEMA
     Route: 055
     Dates: start: 2012

REACTIONS (3)
  - Cataract [Unknown]
  - Stress [Not Recovered/Not Resolved]
  - Device malfunction [Unknown]

NARRATIVE: CASE EVENT DATE: 2014
